FAERS Safety Report 26197124 (Version 1)
Quarter: 2025Q4

REPORT INFORMATION
  Report Type: Spontaneous
  Country: EU (occurrence: EU)
  Receive Date: 20251224
  Receipt Date: 20251224
  Transmission Date: 20260118
  Serious: Yes (Other)
  Sender: SEPTODONT
  Company Number: EU-SEPTODONT-2025020266

PATIENT

DRUGS (1)
  1. ARTICAINE HYDROCHLORIDE\EPINEPHRINE HYDROCHLORIDE [Suspect]
     Active Substance: ARTICAINE HYDROCHLORIDE\EPINEPHRINE HYDROCHLORIDE
     Indication: Local anaesthesia
     Dates: start: 20250521, end: 20250521

REACTIONS (2)
  - Injury [Unknown]
  - Product use in unapproved indication [Unknown]

NARRATIVE: CASE EVENT DATE: 20250521
